FAERS Safety Report 15312692 (Version 1)
Quarter: 2018Q4

REPORT INFORMATION
  Report Type: Spontaneous
  Country: RO (occurrence: RO)
  Receive Date: 20180823
  Receipt Date: 20180823
  Transmission Date: 20190204
  Serious: Yes (Hospitalization, Other)
  Sender: FDA-Public Use
  Company Number: RO-SA-2018SA221232

PATIENT
  Age: 26 Year
  Sex: Female

DRUGS (4)
  1. GRANISETRON [Suspect]
     Active Substance: GRANISETRON
     Dosage: 3 MG
  2. RINGERS SOLUTION [Suspect]
     Active Substance: CALCIUM CHLORIDE\POTASSIUM CHLORIDE\SODIUM CHLORIDE
     Indication: NAUSEA
     Route: 042
  3. RINGERS SOLUTION [Suspect]
     Active Substance: CALCIUM CHLORIDE\POTASSIUM CHLORIDE\SODIUM CHLORIDE
     Indication: VOMITING
  4. RANITIDINE. [Suspect]
     Active Substance: RANITIDINE
     Dosage: 50 MG

REACTIONS (7)
  - HELLP syndrome [Unknown]
  - Exposure during pregnancy [Unknown]
  - Thrombocytopenia [Unknown]
  - Anaemia [Unknown]
  - Hepatic enzyme increased [Unknown]
  - Proteinuria [Unknown]
  - Drug ineffective [Unknown]
